FAERS Safety Report 11100176 (Version 1)
Quarter: 2015Q2

REPORT INFORMATION
  Report Type: Spontaneous
  Country: BE (occurrence: BE)
  Receive Date: 20150508
  Receipt Date: 20150508
  Transmission Date: 20150821
  Serious: Yes (Hospitalization, Other)
  Sender: FDA-Public Use
  Company Number: BE-ASTRAZENECA-2015SE42005

PATIENT
  Age: 3256 Week
  Sex: Male
  Weight: 86 kg

DRUGS (6)
  1. DECAPEPTYL [Suspect]
     Active Substance: TRIPTORELIN ACETATE
     Route: 030
     Dates: start: 20141105
  2. SIMVASTATINE [Concomitant]
     Active Substance: SIMVASTATIN
     Indication: BLOOD CHOLESTEROL ABNORMAL
     Route: 048
     Dates: start: 20111007
  3. ZESTRIL [Concomitant]
     Active Substance: LISINOPRIL
     Indication: HYPERTENSION
     Route: 048
     Dates: start: 20111007, end: 20141205
  4. JANUVIA [Concomitant]
     Active Substance: SITAGLIPTIN PHOSPHATE
     Indication: BLOOD GLUCOSE ABNORMAL
     Route: 048
     Dates: start: 20111007, end: 20141205
  5. CASODEX [Suspect]
     Active Substance: BICALUTAMIDE
     Indication: PROSTATE CANCER
     Dosage: UNKNOWN DOSE, DAILY
     Route: 048
     Dates: start: 20111007, end: 20141005
  6. GLUCOPHAGE [Concomitant]
     Active Substance: METFORMIN HYDROCHLORIDE
     Indication: BLOOD GLUCOSE ABNORMAL
     Route: 048
     Dates: start: 20111007, end: 20141205

REACTIONS (4)
  - Radiation associated haemorrhage [Recovering/Resolving]
  - Haemoglobin decreased [Unknown]
  - Fatigue [Unknown]
  - Asthenia [Unknown]

NARRATIVE: CASE EVENT DATE: 201411
